FAERS Safety Report 9711346 (Version 2)
Quarter: 2014Q1

REPORT INFORMATION
  Report Type: Spontaneous
  Country: US (occurrence: US)
  Receive Date: 20131126
  Receipt Date: 20140130
  Transmission Date: 20141002
  Serious: Yes (Hospitalization, Other)
  Sender: FDA-Public Use
  Company Number: US-BRISTOL-MYERS SQUIBB COMPANY-19520360

PATIENT
  Age: 66 Year
  Sex: Female
  Weight: 103.4 kg

DRUGS (1)
  1. BYETTA [Suspect]
     Indication: TYPE 2 DIABETES MELLITUS
     Dosage: INITIALLY:5MCG(8MONTHS)

REACTIONS (5)
  - Loss of consciousness [Unknown]
  - Weight decreased [Unknown]
  - Drug dose omission [Unknown]
  - Nausea [Recovered/Resolved]
  - Hormone level abnormal [Unknown]
